FAERS Safety Report 4947006-1 (Version None)
Quarter: 2006Q1

REPORT INFORMATION
  Report Type: 
  Country: None (occurrence: None)
  Receive Date: 20060317
  Receipt Date: 20060309
  Transmission Date: 20060701
  Serious: Yes (Other)
  Sender: FDA-Public Use
  Company Number: 2006UW04073

PATIENT
  Age: 35 Year
  Sex: Female

DRUGS (5)
  1. SEROQUEL [Suspect]
     Route: 048
     Dates: start: 20050101
  2. DEPAKOTE ER [Suspect]
  3. LEXAPRO [Suspect]
  4. NEURONTIN [Suspect]
  5. TRAZODONE [Suspect]

REACTIONS (2)
  - CARDIAC FLUTTER [None]
  - PALPITATIONS [None]
